FAERS Safety Report 5668930-0 (Version None)
Quarter: 2008Q1

REPORT INFORMATION
  Report Type: 
  Country: None (occurrence: None)
  Receive Date: 20080317
  Receipt Date: 20080310
  Transmission Date: 20080703
  Serious: Yes (Hospitalization)
  Sender: FDA-Public Use
  Company Number: AU-AVENTIS-200811073EU

PATIENT
  Age: 81 Year
  Sex: Male

DRUGS (1)
  1. RILUTEK [Suspect]
     Route: 048
     Dates: start: 20070614

REACTIONS (2)
  - FALL [None]
  - RIB FRACTURE [None]
